FAERS Safety Report 17689747 (Version 2)
Quarter: 2020Q2

REPORT INFORMATION
  Report Type: Spontaneous
  Country: AU (occurrence: AU)
  Receive Date: 20200421
  Receipt Date: 20200424
  Transmission Date: 20200714
  Serious: Yes (Other)
  Sender: FDA-Public Use
  Company Number: AU-IPSEN BIOPHARMACEUTICALS, INC.-2020-07341

PATIENT
  Age: 62 Year
  Sex: Female

DRUGS (10)
  1. SOMATULINE AUTOGEL [Suspect]
     Active Substance: LANREOTIDE ACETATE
     Indication: PRODUCT USED FOR UNKNOWN INDICATION
     Dosage: NOT REPORTED
     Route: 065
  2. IRBESARTAN. [Concomitant]
     Active Substance: IRBESARTAN
  3. SPIRACTIN [Concomitant]
  4. DEXAMETHASONE. [Concomitant]
     Active Substance: DEXAMETHASONE
  5. MIRTAZAPINE. [Concomitant]
     Active Substance: MIRTAZAPINE
  6. HALOPERIDOL. [Concomitant]
     Active Substance: HALOPERIDOL
  7. INSULIN [Concomitant]
     Active Substance: INSULIN NOS
  8. CORTISONE [Suspect]
     Active Substance: CORTISONE
  9. FUROSEMIDE. [Concomitant]
     Active Substance: FUROSEMIDE
  10. JURNISTA [Concomitant]
     Active Substance: HYDROMORPHONE HYDROCHLORIDE

REACTIONS (11)
  - Diarrhoea [Unknown]
  - Fall [Unknown]
  - Hypoglycaemia [Unknown]
  - Impaired healing [Unknown]
  - Pelvic fracture [Unknown]
  - Skin laceration [Unknown]
  - Diabetes mellitus inadequate control [Unknown]
  - Blood glucose decreased [Unknown]
  - Dizziness [Unknown]
  - Contusion [Unknown]
  - Skin abrasion [Unknown]
